FAERS Safety Report 7077621-3 (Version None)
Quarter: 2010Q4

REPORT INFORMATION
  Report Type: 
  Country: None (occurrence: None)
  Receive Date: 20101101
  Receipt Date: 20101022
  Transmission Date: 20110411
  Serious: Yes (Hospitalization)
  Sender: FDA-Public Use
  Company Number: US-ABBOTT-10P-163-0681317-00

PATIENT
  Sex: Female

DRUGS (3)
  1. HUMIRA [Suspect]
     Indication: PUSTULAR PSORIASIS
     Dates: start: 20100601, end: 20100901
  2. TACLONEX [Concomitant]
     Indication: PUSTULAR PSORIASIS
  3. SYNTHROID [Concomitant]
     Indication: HYPOTHYROIDISM

REACTIONS (3)
  - BONE MARROW FAILURE [None]
  - PALLOR [None]
  - UPPER RESPIRATORY TRACT INFECTION [None]
